FAERS Safety Report 5283391-1 (Version None)
Quarter: 2007Q2

REPORT INFORMATION
  Report Type: 
  Country: None (occurrence: None)
  Receive Date: 20070402
  Receipt Date: 20070323
  Transmission Date: 20071010
  Serious: Yes (Other)
  Sender: FDA-Public Use
  Company Number: FR-AVENTIS-200711091FR

PATIENT
  Age: 68 Year
  Sex: Female

DRUGS (2)
  1. LOVENOX [Suspect]
     Route: 058
     Dates: start: 20070314, end: 20070323
  2. ASPIRIN [Concomitant]
     Route: 048
     Dates: start: 20070321

REACTIONS (2)
  - INJECTION SITE HAEMATOMA [None]
  - RETINAL VASCULAR THROMBOSIS [None]
